FAERS Safety Report 20708270 (Version 5)
Quarter: 2022Q2

REPORT INFORMATION
  Report Type: Report from Study
  Country: DE (occurrence: DE)
  Receive Date: 20220414
  Receipt Date: 20220620
  Transmission Date: 20220721
  Serious: Yes (Hospitalization, Other)
  Sender: FDA-Public Use
  Company Number: DE-CELLTRION INC.-2022DE004600

PATIENT

DRUGS (11)
  1. TRUXIMA [Suspect]
     Active Substance: RITUXIMAB-ABBS
     Indication: Marginal zone lymphoma
     Dosage: 375 MG/M2, DAY 1 OF EACH CYCLE, LAST ADMINISTRATION PRIOR TO REPORTED SAE: 26-MAR-2022
     Route: 042
     Dates: start: 20220326, end: 20220326
  2. TRUXIMA [Suspect]
     Active Substance: RITUXIMAB-ABBS
     Dosage: 375 MG/M2, DAY 1 OF EACH CYCLE, LAST ADMINISTRATION PRIOR TO REPORTED SAE: 26-MAR-2022
     Route: 042
     Dates: start: 20220326, end: 20220326
  3. COPANLISIB [Suspect]
     Active Substance: COPANLISIB
     Indication: Marginal zone lymphoma
     Dosage: 60 MILLIGRAM, CYCLICAL ON D1, D8 AND D15; LAST ADMINISTRATION PRIOR TO REPORTED SAE: 01-APR-2022
     Route: 042
     Dates: start: 20220325, end: 20220401
  4. MAGNESIUM [Concomitant]
     Active Substance: MAGNESIUM
     Indication: Muscle spasms
     Dosage: 300 MG, AS NEEDED
     Route: 048
  5. ACYCLOVIR [Concomitant]
     Active Substance: ACYCLOVIR
     Indication: Prophylaxis
     Dosage: 400 MG, 2X1 DAY
     Route: 048
     Dates: start: 20220325
  6. ALLOPURINOL [Concomitant]
     Active Substance: ALLOPURINOL
     Indication: Prophylaxis
     Dosage: 300 MG, 1X1 DAY
     Route: 048
     Dates: start: 20220325
  7. PANTOZOL [Concomitant]
     Active Substance: PANTOPRAZOLE SODIUM
     Indication: Prophylaxis
     Dosage: 40 MG, 1X1 DAY
     Route: 048
     Dates: start: 20220402
  8. LEVOTHYROXINE [Concomitant]
     Active Substance: LEVOTHYROXINE
     Indication: Autoimmune thyroiditis
     Dosage: 125 MICROGRAM, 1X1 DAY
     Route: 048
     Dates: start: 2012
  9. IBUPROFEN [Concomitant]
     Active Substance: IBUPROFEN
     Indication: Pain
     Dosage: 600 MG, AS NEEDED
     Route: 048
     Dates: start: 2014
  10. MIRTAZAPINE [Concomitant]
     Active Substance: MIRTAZAPINE
     Indication: Depression
     Dosage: 30 MG, 1X1 DAY
     Route: 048
     Dates: start: 2015
  11. DULOXETINE [Concomitant]
     Active Substance: DULOXETINE
     Indication: Depression
     Dosage: 2 X 30 MILLIGRAM IN 1 DAY
     Route: 048
     Dates: start: 2018

REACTIONS (2)
  - Device related infection [Recovered/Resolved]
  - Off label use [Unknown]

NARRATIVE: CASE EVENT DATE: 20220402
